FAERS Safety Report 17982136 (Version 1)
Quarter: 2020Q3

REPORT INFORMATION
  Report Type: Spontaneous
  Country: US (occurrence: US)
  Receive Date: 20200702
  Receipt Date: 20200702
  Transmission Date: 20201103
  Serious: Yes (Death)
  Sender: FDA-Public Use
  Company Number: None

PATIENT
  Age: 85 Year
  Sex: Male
  Weight: 90 kg

DRUGS (13)
  1. REMDESIVIR. [Suspect]
     Active Substance: REMDESIVIR
     Indication: COVID-19
     Dates: start: 20200628, end: 20200629
  2. DEXMEDOTOMIDINE [Concomitant]
     Dates: start: 20200630, end: 20200701
  3. DOCUSATE [Concomitant]
     Active Substance: DOCUSATE
     Dates: start: 20200630, end: 20200701
  4. CEFEPIME [Concomitant]
     Active Substance: CEFEPIME HYDROCHLORIDE
     Dates: start: 20200625, end: 20200701
  5. METHYLPREDNISOLONE. [Concomitant]
     Active Substance: METHYLPREDNISOLONE
     Dates: start: 20200602, end: 20200701
  6. EPINEPHRINE. [Concomitant]
     Active Substance: EPINEPHRINE
     Dates: start: 20200701, end: 20200701
  7. HYDROMORPHONE [Concomitant]
     Active Substance: HYDROMORPHONE
     Dates: start: 20200630, end: 20200701
  8. MIDAZOLAM. [Concomitant]
     Active Substance: MIDAZOLAM
     Dates: start: 20200629, end: 20200701
  9. SUCRALFATE. [Concomitant]
     Active Substance: SUCRALFATE
     Dates: start: 20200630, end: 20200701
  10. VANCOMYCIN [Concomitant]
     Active Substance: VANCOMYCIN
     Dates: start: 20200625, end: 20200701
  11. NOREPINEPHRINE. [Concomitant]
     Active Substance: NOREPINEPHRINE
     Dates: start: 20200630, end: 20200701
  12. SENNOSIDE [Concomitant]
     Active Substance: SENNOSIDES
     Dates: start: 20200629, end: 20200701
  13. VASOPRESSIN. [Concomitant]
     Active Substance: VASOPRESSIN
     Dates: start: 20200630, end: 20200701

REACTIONS (1)
  - Renal failure [None]

NARRATIVE: CASE EVENT DATE: 20200701
